FAERS Safety Report 9629062 (Version 2)
Quarter: 2013Q4

REPORT INFORMATION
  Report Type: Spontaneous
  Country: US (occurrence: US)
  Receive Date: 20131017
  Receipt Date: 20131017
  Transmission Date: 20140711
  Serious: Yes (Hospitalization)
  Sender: FDA-Public Use
  Company Number: US-BAXTER-2013BAX025631

PATIENT
  Age: 77 Year
  Sex: Male

DRUGS (3)
  1. DIANEAL LOW CALCIUM [Suspect]
     Indication: PERITONEAL DIALYSIS
     Route: 033
     Dates: start: 201103
  2. OMEPRAZOLE [Concomitant]
     Indication: IMPAIRED GASTRIC EMPTYING
     Route: 065
  3. ZOFRAN [Concomitant]
     Indication: IMPAIRED GASTRIC EMPTYING
     Route: 065

REACTIONS (4)
  - Nausea [Recovered/Resolved]
  - Vomiting [Recovered/Resolved]
  - Pain [Unknown]
  - Dehydration [Unknown]
